FAERS Safety Report 6891682-3 (Version None)
Quarter: 2010Q3

REPORT INFORMATION
  Report Type: 
  Country: None (occurrence: None)
  Receive Date: 20100731
  Receipt Date: 20070904
  Transmission Date: 20110219
  Serious: No
  Sender: FDA-Public Use
  Company Number: US-PFIZER INC-2007074196

PATIENT
  Sex: Male
  Weight: 113.6 kg

DRUGS (3)
  1. NORVASC [Suspect]
     Indication: HYPERTENSION
     Dates: start: 20070601
  2. LISINOPRIL [Concomitant]
  3. TAMSULOSIN HYDROCHLORIDE [Concomitant]

REACTIONS (2)
  - FATIGUE [None]
  - PRODUCTIVE COUGH [None]
